FAERS Safety Report 7322268-4 (Version None)
Quarter: 2011Q1

REPORT INFORMATION
  Report Type: 
  Country: None (occurrence: None)
  Receive Date: 20110301
  Receipt Date: 20110217
  Transmission Date: 20110831
  Serious: No
  Sender: FDA-Public Use
  Company Number: US-BIOGENIDEC-2011BI000736

PATIENT
  Sex: Male

DRUGS (3)
  1. AVONEX [Concomitant]
     Route: 030
  2. TYSABRI [Suspect]
     Indication: MULTIPLE SCLEROSIS
     Route: 042
     Dates: start: 20090311, end: 20090410
  3. TYSABRI [Suspect]
     Route: 042
     Dates: start: 20101129, end: 20110105

REACTIONS (2)
  - INFUSION SITE REACTION [None]
  - HYPERSENSITIVITY [None]
